FAERS Safety Report 4934211-3 (Version None)
Quarter: 2006Q1

REPORT INFORMATION
  Report Type: 
  Country: None (occurrence: None)
  Receive Date: 20060303
  Receipt Date: 20060216
  Transmission Date: 20060701
  Serious: Yes (Other)
  Sender: FDA-Public Use
  Company Number: DE-2006-002363

PATIENT
  Sex: Female
  Weight: 62 kg

DRUGS (2)
  1. MIRENA [Suspect]
     Indication: MENORRHAGIA
     Dosage: 20 UG/DAY, CONT, INTRA-UTERINE
     Route: 015
     Dates: start: 20000621, end: 20051121
  2. MIRENA [Suspect]
     Dosage: 20 UG/DAY, CONT, INTRA-UTERINE
     Route: 015
     Dates: start: 20051121

REACTIONS (5)
  - CONDITION AGGRAVATED [None]
  - MENSTRUATION IRREGULAR [None]
  - MIGRAINE [None]
  - NAUSEA [None]
  - SCINTILLATING SCOTOMA [None]
